FAERS Safety Report 26179301 (Version 1)
Quarter: 2025Q4

REPORT INFORMATION
  Report Type: Spontaneous
  Country: US (occurrence: None)
  Receive Date: 20251218
  Receipt Date: 20251218
  Transmission Date: 20260118
  Serious: Yes (Other)
  Sender: FDA-CTU
  Company Number: None

PATIENT
  Sex: Female

DRUGS (7)
  1. CIMZIA [Suspect]
     Active Substance: CERTOLIZUMAB PEGOL
     Indication: Rheumatoid arthritis
     Dosage: FREQUENCY : EVERY OTHER WEEK;
     Route: 058
     Dates: start: 20250205
  2. ALBUTEROL TAB2MG [Concomitant]
  3. DILTIAZEM CAP 180MG ER [Concomitant]
  4. OMEGA 3 CAP 340MG [Concomitant]
  5. OXYCODONE TAB 15MG [Concomitant]
  6. PREDNISONE TAB5MG [Concomitant]
  7. PRILOSEC OTC TAB 20MG [Concomitant]

REACTIONS (3)
  - Upper respiratory tract infection [None]
  - Therapy interrupted [None]
  - Loss of personal independence in daily activities [None]
